FAERS Safety Report 17019525 (Version 2)
Quarter: 2020Q1

REPORT INFORMATION
  Report Type: Spontaneous
  Country: AU (occurrence: AU)
  Receive Date: 20191112
  Receipt Date: 20200109
  Transmission Date: 20200409
  Serious: Yes (Death, Hospitalization)
  Sender: FDA-Public Use
  Company Number: AU-ACTELION-A-CH2019-197942

PATIENT
  Age: 77 Year
  Sex: Male

DRUGS (10)
  1. ATORVASTATIN [Concomitant]
     Active Substance: ATORVASTATIN
     Dosage: 40 MG, OD
  2. OPSUMIT [Suspect]
     Active Substance: MACITENTAN
     Indication: PULMONARY VENO-OCCLUSIVE DISEASE
     Dosage: UNK, QD
     Route: 048
     Dates: start: 20180206
  3. SILDENAFIL. [Concomitant]
     Active Substance: SILDENAFIL
     Indication: PRODUCT USED FOR UNKNOWN INDICATION
     Dosage: 40 MG, BID
     Route: 048
     Dates: start: 20171028
  4. PANTOPRAZOLE [Concomitant]
     Active Substance: PANTOPRAZOLE
     Dosage: 40 MG, OD
  5. SPIRONOLACTONE. [Concomitant]
     Active Substance: SPIRONOLACTONE
     Dosage: 12.5 MG, OD
  6. NOVOMIX [Concomitant]
     Active Substance: INSULIN ASPART
  7. METFORMIN [Concomitant]
     Active Substance: METFORMIN HYDROCHLORIDE
     Dosage: 500 MG, OD
  8. FRUSEMIDE [Concomitant]
     Active Substance: FUROSEMIDE
     Dosage: 120 MG, BID
  9. LINAGLIPTIN [Concomitant]
     Active Substance: LINAGLIPTIN
  10. OXYGEN. [Concomitant]
     Active Substance: OXYGEN
     Dosage: 5-8L/MIN

REACTIONS (1)
  - Hypoglycaemia [Fatal]

NARRATIVE: CASE EVENT DATE: 20191101
